FAERS Safety Report 22311459 (Version 6)
Quarter: 2023Q4

REPORT INFORMATION
  Report Type: Report from Study
  Country: FR (occurrence: FR)
  Receive Date: 20230511
  Receipt Date: 20231231
  Transmission Date: 20240109
  Serious: Yes (Other)
  Sender: FDA-Public Use
  Company Number: FR-JNJFOC-20230514129

PATIENT
  Age: 76 Year
  Sex: Male

DRUGS (10)
  1. TECLISTAMAB [Suspect]
     Active Substance: TECLISTAMAB
     Indication: Plasma cell myeloma
     Dosage: LINE: 1 THERAPY?THERAPY WAS NOT TRANSPLANT RELATED
     Route: 058
     Dates: start: 20230322
  2. TECLISTAMAB [Suspect]
     Active Substance: TECLISTAMAB
     Route: 058
     Dates: end: 20230802
  3. VENETOCLAX [Suspect]
     Active Substance: VENETOCLAX
     Indication: Product used for unknown indication
     Route: 065
     Dates: start: 20230111, end: 20230322
  4. CARFILZOMIB [Concomitant]
     Active Substance: CARFILZOMIB
     Indication: Product used for unknown indication
     Dosage: 2 LINE OF THERAPY (THERAPY WAS NOT TRANSPLANT RELATED)
     Route: 065
     Dates: start: 20230825
  5. BARACLUDE [Concomitant]
     Active Substance: ENTECAVIR
  6. TENOFOVIR [Concomitant]
     Active Substance: TENOFOVIR
  7. BACTRIM [Concomitant]
     Active Substance: SULFAMETHOXAZOLE\TRIMETHOPRIM
     Dates: end: 20230413
  8. ATOVAQUONE [Concomitant]
     Active Substance: ATOVAQUONE
  9. CYCLOPHOSPHAMIDE [Concomitant]
     Active Substance: CYCLOPHOSPHAMIDE
     Indication: Product used for unknown indication
     Dosage: 2 LINE OF THERAPY (THERAPY WAS NOT TRANSPLANT RELATED)
     Route: 065
     Dates: start: 20230825
  10. DEXAMETHASONE [Concomitant]
     Active Substance: DEXAMETHASONE
     Indication: Product used for unknown indication
     Dosage: 2 LINE OF THERAPY (THERAPY WAS NOT TRANSPLANT RELATED)
     Route: 065
     Dates: start: 20230825

REACTIONS (4)
  - Hepatic cytolysis [Recovering/Resolving]
  - Neutropenia [Recovered/Resolved]
  - Blood creatinine increased [Recovered/Resolved]
  - Pain [Recovering/Resolving]

NARRATIVE: CASE EVENT DATE: 20230322
